FAERS Safety Report 10431171 (Version 1)
Quarter: 2014Q3

REPORT INFORMATION
  Report Type: Spontaneous
  Country: US (occurrence: US)
  Receive Date: 20140904
  Receipt Date: 20140904
  Transmission Date: 20150326
  Serious: Yes (Death)
  Sender: FDA-Public Use
  Company Number: CHPA2014US011543

PATIENT
  Age: 86 Year
  Sex: Female

DRUGS (4)
  1. BUFFERIN [Suspect]
     Active Substance: ASPIRIN
     Indication: ARTHRITIS
  2. BUFFERIN [Suspect]
     Active Substance: ASPIRIN
     Indication: HEADACHE
     Dosage: UNK, PRN
     Route: 048
  3. EXCEDRIN [Suspect]
     Active Substance: ACETAMINOPHEN\ASPIRIN\CAFFEINE
     Indication: ARTHRITIS
  4. EXCEDRIN [Suspect]
     Active Substance: ACETAMINOPHEN\ASPIRIN\CAFFEINE
     Indication: HEADACHE
     Dosage: UNK, PRN
     Route: 048

REACTIONS (1)
  - Death [Fatal]

NARRATIVE: CASE EVENT DATE: 19830709
